FAERS Safety Report 6551083-4 (Version None)
Quarter: 2010Q1

REPORT INFORMATION
  Report Type: 
  Country: None (occurrence: None)
  Receive Date: 20100121
  Receipt Date: 20100111
  Transmission Date: 20100710
  Serious: Yes (Death)
  Sender: FDA-Public Use
  Company Number: 004580

PATIENT
  Age: 24 Year
  Sex: Male

DRUGS (7)
  1. ALPRAZOLAM [Suspect]
  2. OXYCODONE HCL [Suspect]
  3. COCAINE [Suspect]
  4. METHYLENEDIOXYMETHAMPHETAMINE [Suspect]
  5. PHENOBARBITAL [Concomitant]
  6. ZOLPIDEM [Concomitant]
  7. LORAZEPAM [Concomitant]

REACTIONS (1)
  - COMPLETED SUICIDE [None]
